APPROVED DRUG PRODUCT: TEPMETKO
Active Ingredient: TEPOTINIB HYDROCHLORIDE
Strength: EQ 225MG BASE
Dosage Form/Route: TABLET;ORAL
Application: N214096 | Product #001
Applicant: EMD SERONO INC
Approved: Feb 3, 2021 | RLD: Yes | RS: Yes | Type: RX

PATENTS:
Patent 8658643 | Expires: Jul 4, 2028
Patent 8927540 | Expires: Jul 21, 2028
Patent 9403799 | Expires: Jul 4, 2028
Patent 8580781 | Expires: Mar 19, 2030
Patent 8329692 | Expires: Oct 30, 2029
Patent 8921357 | Expires: May 30, 2028
Patent 9062029 | Expires: Jul 4, 2028
Patent 9284300 | Expires: Apr 29, 2028

EXCLUSIVITY:
Code: NCE | Date: Feb 3, 2026
Code: ODE-325 | Date: Feb 3, 2028